FAERS Safety Report 18436428 (Version 1)
Quarter: 2020Q4

REPORT INFORMATION
  Report Type: Spontaneous
  Country: ES (occurrence: ES)
  Receive Date: 20201028
  Receipt Date: 20201028
  Transmission Date: 20210114
  Serious: Yes (Other)
  Sender: FDA-Public Use
  Company Number: ES-PFIZER INC-2020412628

PATIENT
  Age: 46 Year
  Sex: Female
  Weight: 56.1 kg

DRUGS (6)
  1. METFORMINE [METFORMIN] [Concomitant]
     Active Substance: METFORMIN HYDROCHLORIDE
     Dosage: UNK
  2. PANTOPRAZOL [PANTOPRAZOLE] [Concomitant]
     Active Substance: PANTOPRAZOLE
     Dosage: UNK
  3. OXALIPLATIN. [Suspect]
     Active Substance: OXALIPLATIN
     Indication: GASTRIC CANCER
     Dosage: 130 MG/M2, CYCLIC (EVERY 3 WEEKS)
     Route: 042
     Dates: start: 20200901, end: 20200922
  4. FENTANYL TRANSDERMAL SYSTEM [Concomitant]
     Active Substance: FENTANYL
     Dosage: 25 UG
  5. ORFIDAL [Concomitant]
     Active Substance: LORAZEPAM
     Dosage: UNK
  6. MOTILIUM [Concomitant]
     Active Substance: DOMPERIDONE
     Dosage: UNK

REACTIONS (5)
  - Dysaesthesia pharynx [Recovered/Resolved]
  - Monoparesis [Recovered/Resolved]
  - Off label use [Unknown]
  - Paraparesis [Recovered/Resolved]
  - Product use in unapproved indication [Unknown]

NARRATIVE: CASE EVENT DATE: 20200901
